FAERS Safety Report 19843399 (Version 1)
Quarter: 2021Q3

REPORT INFORMATION
  Report Type: Spontaneous
  Country: CN (occurrence: CN)
  Receive Date: 20210917
  Receipt Date: 20210917
  Transmission Date: 20211014
  Serious: Yes (Other)
  Sender: FDA-Public Use
  Company Number: CN-ROCHE-2904801

PATIENT
  Age: 56 Year
  Sex: Female

DRUGS (3)
  1. TECENTRIQ [Suspect]
     Active Substance: ATEZOLIZUMAB
     Indication: SMALL CELL LUNG CANCER
     Route: 065
     Dates: start: 20210825
  2. CISPLATIN. [Concomitant]
     Active Substance: CISPLATIN
  3. ETOPOSIDE. [Concomitant]
     Active Substance: ETOPOSIDE

REACTIONS (5)
  - Dizziness [Unknown]
  - Soliloquy [Not Recovered/Not Resolved]
  - Hyponatraemia [Recovering/Resolving]
  - Pyrexia [Not Recovered/Not Resolved]
  - Cerebral ischaemia [Unknown]
